FAERS Safety Report 5926799-0 (Version None)
Quarter: 2008Q4

REPORT INFORMATION
  Report Type: 
  Country: None (occurrence: None)
  Receive Date: 20081022
  Receipt Date: 20081007
  Transmission Date: 20090506
  Serious: Yes (Hospitalization)
  Sender: FDA-Public Use
  Company Number: DE-BAYER-200828358GPV

PATIENT
  Age: 65 Year
  Sex: Female

DRUGS (1)
  1. SORAFENIB [Suspect]
     Indication: THYROID CANCER
     Route: 065

REACTIONS (6)
  - DIARRHOEA [None]
  - HEPATITIS [None]
  - INFLUENZA LIKE ILLNESS [None]
  - PYREXIA [None]
  - RASH [None]
  - STOMATITIS [None]
